FAERS Safety Report 8393552-0 (Version None)
Quarter: 2012Q2

REPORT INFORMATION
  Report Type: 
  Country: None (occurrence: None)
  Receive Date: 20120529
  Receipt Date: 20120521
  Transmission Date: 20120825
  Serious: Yes (Hospitalization)
  Sender: FDA-Public Use
  Company Number: TR-AMGEN-TURSP2012014516

PATIENT
  Age: 53 Year
  Sex: Female

DRUGS (2)
  1. ENBREL [Suspect]
     Indication: RHEUMATOID ARTHRITIS
     Dosage: 50 MG, WEEKLY
     Route: 058
     Dates: start: 20110702, end: 20120130
  2. ENBREL [Suspect]
     Dosage: 50 MG, WEEKLY
     Route: 058
     Dates: start: 20120311

REACTIONS (8)
  - VASCULAR GRAFT [None]
  - ASTHENIA [None]
  - VENTRICULAR SEPTAL DEFECT [None]
  - ARTHRALGIA [None]
  - OEDEMA PERIPHERAL [None]
  - SURGERY [None]
  - HEART VALVE INCOMPETENCE [None]
  - GAIT DISTURBANCE [None]
